FAERS Safety Report 16597576 (Version 1)
Quarter: 2019Q3

REPORT INFORMATION
  Report Type: Spontaneous
  Country: US (occurrence: US)
  Receive Date: 20190718
  Receipt Date: 20190718
  Transmission Date: 20191004
  Serious: Yes (Other)
  Sender: FDA-Public Use
  Company Number: None

PATIENT
  Age: 52 Year
  Sex: Female
  Weight: 79.65 kg

DRUGS (16)
  1. ATENOLOL. [Concomitant]
     Active Substance: ATENOLOL
  2. ASPIRIN. [Concomitant]
     Active Substance: ASPIRIN
  3. TRULICITY [Suspect]
     Active Substance: DULAGLUTIDE
     Indication: HYPOGLYCAEMIA
     Dosage: ?          QUANTITY:4 INJECTION(S);OTHER FREQUENCY:ONCE A WEEK;OTHER ROUTE:INJECTION UNDER THE SKIN?
     Dates: start: 20190713, end: 20190713
  4. HUMALOG [Concomitant]
     Active Substance: INSULIN LISPRO
  5. LOSARTAN. [Concomitant]
     Active Substance: LOSARTAN
  6. PANTOPRAZOLE [Concomitant]
     Active Substance: PANTOPRAZOLE
  7. PRAVASTATIN. [Concomitant]
     Active Substance: PRAVASTATIN
  8. BIOTIN [Concomitant]
     Active Substance: BIOTIN
  9. VITAMIN B COMPLEX [Concomitant]
     Active Substance: CYANOCOBALAMIN\DEXPANTHENOL\NIACINAMIDE\PYRIDOXINE HYDROCHLORIDE\RIBOFLAVIN 5^-PHOSPHATE SODIUM\THIAMINE HYDROCHLORIDE\VITAMIN B COMPLEX
  10. CALCIUM [Concomitant]
     Active Substance: CALCIUM
  11. VITAMIN D3 [Concomitant]
     Active Substance: CHOLECALCIFEROL
  12. LIOTHYRONINE [Concomitant]
     Active Substance: LIOTHYRONINE
  13. LEVOTHYROXINE. [Concomitant]
     Active Substance: LEVOTHYROXINE
  14. CREON [Concomitant]
     Active Substance: PANCRELIPASE AMYLASE\PANCRELIPASE LIPASE\PANCRELIPASE PROTEASE
  15. PROGESTERONE. [Concomitant]
     Active Substance: PROGESTERONE
  16. ESTRADIOL. [Concomitant]
     Active Substance: ESTRADIOL

REACTIONS (3)
  - Deafness [None]
  - Tinnitus [None]
  - Ear discomfort [None]

NARRATIVE: CASE EVENT DATE: 20190714
